FAERS Safety Report 6869559-9 (Version None)
Quarter: 2010Q3

REPORT INFORMATION
  Report Type: 
  Country: None (occurrence: None)
  Receive Date: 20100722
  Receipt Date: 20080912
  Transmission Date: 20110219
  Serious: No
  Sender: FDA-Public Use
  Company Number: US-PFIZER INC-2008066614

PATIENT
  Sex: Female
  Weight: 104.33 kg

DRUGS (13)
  1. CHANTIX [Suspect]
     Indication: SMOKING CESSATION THERAPY
     Dates: start: 20080501
  2. MONTELUKAST SODIUM [Concomitant]
  3. NEXIUM [Concomitant]
  4. HYDROCODONE [Concomitant]
  5. TRAZODONE [Concomitant]
  6. EFFEXOR [Concomitant]
  7. FISH OIL [Concomitant]
  8. ACETYLSALICYLIC ACID [Concomitant]
  9. PREMARIN [Concomitant]
  10. LIPITOR [Concomitant]
  11. ALISKIREN [Concomitant]
  12. NEBIVOLOL [Concomitant]
  13. TOPAMAX [Concomitant]

REACTIONS (1)
  - PARAESTHESIA [None]
